FAERS Safety Report 8826288 (Version 2)
Quarter: 2012Q4

REPORT INFORMATION
  Report Type: 
  Country: JP (occurrence: JP)
  Receive Date: 20121005
  Receipt Date: 20121111
  Transmission Date: 20130627
  Serious: No
  Sender: FDA-Public Use
  Company Number: JP-BRISTOL-MYERS SQUIBB COMPANY-17010836

PATIENT
  Age: 65 Year
  Sex: Female

DRUGS (3)
  1. BRIPLATIN [Suspect]
     Indication: LUNG NEOPLASM MALIGNANT
     Dosage: 12Sep12
     Route: 041
     Dates: start: 20120518, end: 20120912
  2. AVASTIN [Suspect]
     Indication: LUNG NEOPLASM MALIGNANT
     Dosage: Therapy on 12Sep12
     Route: 041
  3. ALIMTA [Suspect]
     Indication: LUNG NEOPLASM MALIGNANT
     Dosage: Therapy on 12Sep12
     Route: 041

REACTIONS (1)
  - Anaphylactoid reaction [Recovered/Resolved]
